FAERS Safety Report 5195228-X (Version None)
Quarter: 2006Q4

REPORT INFORMATION
  Report Type: 
  Country: None (occurrence: None)
  Receive Date: 20061229
  Receipt Date: 20061129
  Transmission Date: 20070319
  Serious: Yes (Other)
  Sender: FDA-Public Use
  Company Number: JP-MERCK-0612USA03818

PATIENT
  Age: 77 Year
  Sex: Female
  Weight: 35 kg

DRUGS (12)
  1. FOSAMAX [Suspect]
     Indication: OSTEOPOROSIS
     Route: 048
     Dates: start: 20061004, end: 20060101
  2. TANATRIL [Concomitant]
     Indication: HYPERTENSION
     Route: 048
     Dates: start: 20010810
  3. BLOPRESS [Concomitant]
     Route: 048
     Dates: start: 20051111
  4. VASOLAN [Concomitant]
     Indication: ANGINA PECTORIS
     Route: 048
     Dates: start: 20040522
  5. DIART [Concomitant]
     Indication: HYPERTENSION
     Route: 048
     Dates: start: 20050603
  6. ASPIRIN [Concomitant]
     Route: 048
     Dates: start: 20010109
  7. ALFACALCIDOL [Concomitant]
     Route: 048
     Dates: start: 20050218
  8. FERROMIA [Concomitant]
     Route: 048
     Dates: start: 20050617
  9. SELBEX [Concomitant]
     Route: 048
     Dates: start: 19960810
  10. BIOFERMIN R [Concomitant]
     Route: 048
     Dates: start: 19960810
  11. MAGNESIUM OXIDE [Concomitant]
     Route: 048
     Dates: start: 19960810
  12. GLUCOBAY [Concomitant]
     Route: 048
     Dates: start: 20020927

REACTIONS (4)
  - HYPERHIDROSIS [None]
  - LOSS OF CONSCIOUSNESS [None]
  - SYNCOPE [None]
  - URINARY INCONTINENCE [None]
